FAERS Safety Report 24620638 (Version 1)
Quarter: 2024Q4

REPORT INFORMATION
  Report Type: Spontaneous
  Country: US (occurrence: US)
  Receive Date: 20241114
  Receipt Date: 20241114
  Transmission Date: 20250115
  Serious: No
  Sender: DR REDDYS
  Company Number: US-DRL-USA-SPO/USA/24/0016461

PATIENT
  Age: 63 Year
  Sex: Male

DRUGS (1)
  1. NICOTINE TRANSDERMAL SYSTEM STEP 2 [Suspect]
     Active Substance: NICOTINE
     Indication: Ex-tobacco user
     Dosage: QUANTITY: 14 COUNT
     Route: 062
     Dates: start: 20241001

REACTIONS (1)
  - Application site bruise [Unknown]
